FAERS Safety Report 21669698 (Version 1)
Quarter: 2022Q4

REPORT INFORMATION
  Report Type: Report from Study
  Country: US (occurrence: US)
  Receive Date: 20221201
  Receipt Date: 20221201
  Transmission Date: 20230113
  Serious: Yes (Hospitalization)
  Sender: FDA-Public Use
  Company Number: US-BAYER-2022A163014

PATIENT
  Age: 59 Year
  Sex: Male

DRUGS (1)
  1. NUBEQA [Suspect]
     Active Substance: DAROLUTAMIDE
     Indication: Prostate cancer
     Dosage: 600 MG, BID
     Route: 048
     Dates: start: 20221114, end: 20221121

REACTIONS (3)
  - Vomiting [None]
  - Hypertension [None]
  - Intentional dose omission [None]

NARRATIVE: CASE EVENT DATE: 20221114
